FAERS Safety Report 5825045-6 (Version None)
Quarter: 2008Q3

REPORT INFORMATION
  Report Type: 
  Country: None (occurrence: None)
  Receive Date: 20080729
  Receipt Date: 20080722
  Transmission Date: 20090109
  Serious: Yes (Other)
  Sender: FDA-Public Use
  Company Number: JP-ALLERGAN-0806960US

PATIENT
  Sex: Male

DRUGS (7)
  1. MIROL [Suspect]
     Indication: ANGLE CLOSURE GLAUCOMA
     Dosage: 0.2 ML, BID
     Route: 047
     Dates: start: 20080419, end: 20080526
  2. TRUSOPT [Suspect]
     Indication: INTRAOCULAR PRESSURE DECREASED
     Dosage: 0.2 ML, BID
     Route: 047
     Dates: start: 20080419, end: 20080522
  3. VEGAMOX [Concomitant]
     Indication: INFECTION
     Dosage: 0.6 ML, QD
     Route: 047
     Dates: start: 20080522, end: 20080526
  4. XALATAN [Concomitant]
     Dosage: 0.1 ML, QD
     Route: 047
     Dates: start: 20080512, end: 20080522
  5. SANPILO [Concomitant]
     Dosage: 0.1 ML, QD
     Route: 047
     Dates: start: 20080419, end: 20080522
  6. RINDERON A [Concomitant]
     Dosage: 0.6 ML, QD
     Route: 047
     Dates: start: 20080516, end: 20080522
  7. FLUMETHOLON [Concomitant]
     Dosage: 0.6 ML, QD
     Route: 047
     Dates: start: 20080524, end: 20080526

REACTIONS (3)
  - CORNEAL INFILTRATES [None]
  - EYE PAIN [None]
  - FOREIGN BODY SENSATION IN EYES [None]
